FAERS Safety Report 20839473 (Version 4)
Quarter: 2022Q2

REPORT INFORMATION
  Report Type: Spontaneous
  Country: ES (occurrence: ES)
  Receive Date: 20220517
  Receipt Date: 20220621
  Transmission Date: 20220721
  Serious: Yes (Hospitalization, Other)
  Sender: FDA-Public Use
  Company Number: ES-NOVARTISPH-NVSC2022ES113401

PATIENT
  Age: 75 Year

DRUGS (16)
  1. CLOPIDOGREL [Interacting]
     Active Substance: CLOPIDOGREL BISULFATE
     Indication: Cardiovascular disorder
     Dosage: 75 MG, QD (0/1/0, 2 YEARS AGO)
     Route: 065
  2. CLOPIDOGREL [Interacting]
     Active Substance: CLOPIDOGREL BISULFATE
     Indication: Cerebrovascular accident
  3. REPAGLINIDE [Interacting]
     Active Substance: REPAGLINIDE
     Indication: Diabetes mellitus
     Dosage: 2 MG, BID (1/0/1)
     Route: 065
  4. REPAGLINIDE [Interacting]
     Active Substance: REPAGLINIDE
     Dosage: 2 MG, TID (2/2/1)
     Route: 065
  5. METFORMIN [Interacting]
     Active Substance: METFORMIN HYDROCHLORIDE
     Indication: Diabetes mellitus
     Dosage: 1 G, BID (1/0/1)
     Route: 065
  6. METFORMIN [Interacting]
     Active Substance: METFORMIN HYDROCHLORIDE
     Dosage: 850 MG, BID (1/0/1)
     Route: 065
  7. PANTOPRAZOLE [Interacting]
     Active Substance: PANTOPRAZOLE
     Indication: Gastrointestinal disorder prophylaxis
     Dosage: 40 MG, QD (1/0/0, UNK)
     Route: 065
  8. PANTOPRAZOLE [Interacting]
     Active Substance: PANTOPRAZOLE
     Indication: Gastric disorder
  9. ACETAMINOPHEN [Concomitant]
     Active Substance: ACETAMINOPHEN
     Indication: Pain
     Dosage: 1000 MG  ON REQUEST
     Route: 065
  10. DONEPEZIL [Concomitant]
     Active Substance: DONEPEZIL
     Indication: Dementia
     Dosage: 10 MILLIGRAM, QD (1/0/0), 1 YEAR
     Route: 065
  11. FOLIC ACID [Concomitant]
     Active Substance: FOLIC ACID
     Indication: Folate deficiency
     Dosage: 5 MG, QD (0/1/0)
     Route: 065
  12. PREDNISONE [Concomitant]
     Active Substance: PREDNISONE
     Indication: Inflammatory bowel disease
     Dosage: UNK, BID, (0.5/0.5)
     Route: 065
  13. PREDNISONE [Concomitant]
     Active Substance: PREDNISONE
     Indication: Gastrointestinal inflammation
  14. VILDAGLIPTIN [Concomitant]
     Active Substance: VILDAGLIPTIN
     Indication: Diabetes mellitus
     Dosage: 50 MG, BID (0/1/1)
     Route: 065
  15. CALCIO [Concomitant]
     Indication: Steroid therapy
     Dosage: UNK UNK, QD (1/0/, THREE MONTHS AGO, 1.000 MG/800 UI)
     Route: 065
  16. VITAMIN D3 [Concomitant]
     Active Substance: CHOLECALCIFEROL
     Indication: Steroid therapy
     Dosage: UNK UNK, QD (1/0/0, THREE MONTHS AGO, 1.000 MG/800 UI)
     Route: 065

REACTIONS (5)
  - Anal incontinence [Recovering/Resolving]
  - Abdominal pain [Recovering/Resolving]
  - Diarrhoea [Recovering/Resolving]
  - Flatulence [Recovering/Resolving]
  - Drug interaction [Unknown]
